FAERS Safety Report 15692299 (Version 1)
Quarter: 2018Q4

REPORT INFORMATION
  Report Type: Report from Study
  Country: None (occurrence: US)
  Receive Date: 20181205
  Receipt Date: 20181205
  Transmission Date: 20190205
  Serious: Yes (Hospitalization, Other)
  Sender: FDA-Public Use
  Company Number: US-ABBVIE-18S-163-2574507-00

PATIENT
  Age: 55 Year
  Sex: Male

DRUGS (1)
  1. CREON [Suspect]
     Active Substance: PANCRELIPASE AMYLASE\PANCRELIPASE LIPASE\PANCRELIPASE PROTEASE
     Indication: PRODUCT USED FOR UNKNOWN INDICATION
     Route: 048

REACTIONS (24)
  - Adenocarcinoma pancreas [Not Recovered/Not Resolved]
  - Rhinitis allergic [Unknown]
  - Portal vein thrombosis [Unknown]
  - Osteoarthritis [Unknown]
  - Hyperlipidaemia [Unknown]
  - Hypogonadism male [Unknown]
  - Cellulitis [Unknown]
  - Scapholunate dissociation [Unknown]
  - Prostate cancer [Unknown]
  - Back pain [Unknown]
  - Cataract nuclear [Unknown]
  - Essential hypertension [Unknown]
  - Arthropathy [Unknown]
  - Neck pain [Unknown]
  - Back pain [Unknown]
  - Chest pain [Unknown]
  - Liver function test abnormal [Unknown]
  - Hepatic steatosis [Unknown]
  - Haematoma [Unknown]
  - Cataract [Unknown]
  - Tendon rupture [Unknown]
  - Prostate cancer [Unknown]
  - Asthma [Unknown]
  - Abscess limb [Unknown]

NARRATIVE: CASE EVENT DATE: 20041104
